FAERS Safety Report 8025074 (Version 4)
Quarter: 2013Q2

REPORT INFORMATION
  Report Type: Spontaneous
  Country: US (occurrence: US)
  Receive Date: 20110707
  Receipt Date: 20130507
  Transmission Date: 20140414
  Serious: Yes (Other)
  Sender: FDA-Public Use
  Company Number: US-ROCHE-787529

PATIENT
  Sex: Male
  Weight: 79.9 kg

DRUGS (2)
  1. ACCUTANE [Suspect]
     Indication: ACNE
     Route: 065
     Dates: start: 1985, end: 1986
  2. TETRACYCLINE [Concomitant]

REACTIONS (6)
  - Colitis ulcerative [Unknown]
  - Irritable bowel syndrome [Unknown]
  - Injury [Unknown]
  - Emotional disorder [Unknown]
  - Stress [Unknown]
  - Inflammatory bowel disease [Unknown]
